FAERS Safety Report 6251991-8 (Version None)
Quarter: 2009Q2

REPORT INFORMATION
  Report Type: 
  Country: None (occurrence: None)
  Receive Date: 20090630
  Receipt Date: 20040203
  Transmission Date: 20091009
  Serious: Yes (Hospitalization)
  Sender: FDA-Public Use
  Company Number: US-ROCHE-638324

PATIENT
  Sex: Male

DRUGS (13)
  1. ENFUVIRTIDE [Suspect]
     Route: 065
     Dates: start: 20031015, end: 20050801
  2. APTIVUS [Concomitant]
     Dates: start: 20031015, end: 20071204
  3. EPIVIR [Concomitant]
     Dates: start: 20031015, end: 20071204
  4. NORVIR [Concomitant]
     Dates: start: 20031015, end: 20071204
  5. VIREAD [Concomitant]
     Dates: start: 20031015, end: 20071204
  6. ZERIT [Concomitant]
     Dates: start: 20031015, end: 20071204
  7. BACTRIM [Concomitant]
     Dates: start: 20030804, end: 20060201
  8. INTESTAMIN [Concomitant]
     Dates: start: 20071204, end: 20080814
  9. ISENTRESS [Concomitant]
     Dates: start: 20071204, end: 20080814
  10. NORVIR [Concomitant]
     Dates: start: 20071204, end: 20080814
  11. PREZISTA [Concomitant]
     Dates: start: 20071204, end: 20080814
  12. TRUVADA [Concomitant]
     Dates: start: 20071204, end: 20080814
  13. DIFLUCAN [Concomitant]
     Dates: start: 20080725, end: 20080814

REACTIONS (1)
  - APPENDICITIS PERFORATED [None]
